FAERS Safety Report 20818383 (Version 1)
Quarter: 2022Q2

REPORT INFORMATION
  Report Type: Spontaneous
  Country: US (occurrence: US)
  Receive Date: 20220512
  Receipt Date: 20220512
  Transmission Date: 20220720
  Serious: No
  Sender: FDA-Public Use
  Company Number: US-TEVA-2022-US-2025736

PATIENT
  Sex: Male
  Weight: 78.93 kg

DRUGS (1)
  1. QNASL [Suspect]
     Active Substance: BECLOMETHASONE DIPROPIONATE
     Indication: Sinus congestion
     Dosage: 2 PUFFS IN EACH NOSTRIL ONCE A DAY
     Route: 045

REACTIONS (3)
  - Burning sensation [Unknown]
  - Pruritus [Unknown]
  - Sneezing [Unknown]
